FAERS Safety Report 23896213 (Version 1)
Quarter: 2024Q2

REPORT INFORMATION
  Report Type: Spontaneous
  Country: CA (occurrence: CA)
  Receive Date: 20240524
  Receipt Date: 20240524
  Transmission Date: 20240716
  Serious: Yes (Other)
  Sender: FDA-Public Use
  Company Number: CA-BEH-2024172525

PATIENT
  Age: 34 Year
  Sex: Female

DRUGS (15)
  1. BERINERT [Suspect]
     Active Substance: HUMAN C1-ESTERASE INHIBITOR
     Indication: Prophylaxis
     Dosage: 1500 IU, QW
     Route: 058
  2. BERINERT [Suspect]
     Active Substance: HUMAN C1-ESTERASE INHIBITOR
     Indication: Prophylaxis
     Dosage: 1500 IU, QW
     Route: 058
  3. BERINERT [Suspect]
     Active Substance: HUMAN C1-ESTERASE INHIBITOR
     Indication: Hereditary angioedema with C1 esterase inhibitor deficiency
     Dosage: 1500 IU
     Route: 058
  4. BERINERT [Suspect]
     Active Substance: HUMAN C1-ESTERASE INHIBITOR
     Indication: Hereditary angioedema with C1 esterase inhibitor deficiency
     Dosage: 1500 IU
     Route: 058
  5. BERINERT [Suspect]
     Active Substance: HUMAN C1-ESTERASE INHIBITOR
     Dosage: UNK, TIW
     Route: 058
  6. BERINERT [Suspect]
     Active Substance: HUMAN C1-ESTERASE INHIBITOR
     Dosage: UNK, TIW
     Route: 058
  7. BERINERT [Suspect]
     Active Substance: HUMAN C1-ESTERASE INHIBITOR
     Dosage: UNK, BIW
     Route: 058
  8. BERINERT [Suspect]
     Active Substance: HUMAN C1-ESTERASE INHIBITOR
     Dosage: UNK, BIW
     Route: 058
  9. BERINERT [Suspect]
     Active Substance: HUMAN C1-ESTERASE INHIBITOR
     Dosage: 1500 IU, QW
     Route: 058
  10. BERINERT [Suspect]
     Active Substance: HUMAN C1-ESTERASE INHIBITOR
     Dosage: 1500 IU, QW
     Route: 058
  11. BERINERT [Suspect]
     Active Substance: HUMAN C1-ESTERASE INHIBITOR
     Dosage: UNK, QD
     Route: 058
  12. BERINERT [Suspect]
     Active Substance: HUMAN C1-ESTERASE INHIBITOR
     Dosage: UNK, QD
     Route: 058
  13. CINRYZE [Suspect]
     Active Substance: HUMAN C1-ESTERASE INHIBITOR
     Indication: Prophylaxis
     Dosage: 1500 IU
     Route: 042
  14. CINRYZE [Suspect]
     Active Substance: HUMAN C1-ESTERASE INHIBITOR
     Indication: Hereditary angioedema with C1 esterase inhibitor deficiency
     Dosage: 1500 IU
     Route: 042
  15. CINRYZE [Suspect]
     Active Substance: HUMAN C1-ESTERASE INHIBITOR
     Dosage: 1500 IU
     Route: 042

REACTIONS (13)
  - Abdominal discomfort [Recovered/Resolved]
  - Off label use [Unknown]
  - Off label use [Unknown]
  - Emotional distress [Recovered/Resolved]
  - Maternal exposure during pregnancy [Recovered/Resolved]
  - Hereditary angioedema [Recovered/Resolved]
  - Influenza like illness [Recovered/Resolved]
  - Malaise [Recovered/Resolved]
  - Nausea [Recovered/Resolved]
  - Off label use [Recovered/Resolved]
  - Oropharyngeal discomfort [Recovered/Resolved]
  - Stress [Recovered/Resolved]
  - Therapeutic product effect delayed [Recovered/Resolved]
